FAERS Safety Report 15687454 (Version 1)
Quarter: 2018Q4

REPORT INFORMATION
  Report Type: Spontaneous
  Country: US (occurrence: US)
  Receive Date: 20181205
  Receipt Date: 20181205
  Transmission Date: 20190205
  Serious: No
  Sender: FDA-Public Use
  Company Number: US-DSJP-DSU-2017-146940

PATIENT

DRUGS (3)
  1. GLUCOTROL [Suspect]
     Active Substance: GLIPIZIDE
     Indication: PRODUCT USED FOR UNKNOWN INDICATION
  2. AZOR [Suspect]
     Active Substance: AMLODIPINE BESYLATE\OLMESARTAN MEDOXOMIL
     Indication: PRODUCT USED FOR UNKNOWN INDICATION
     Dosage: 10/40MG, UNK
     Dates: start: 20090601, end: 20161117
  3. AZOR [Suspect]
     Active Substance: AMLODIPINE BESYLATE\OLMESARTAN MEDOXOMIL
     Dosage: 10/20MG, QD
     Route: 048
     Dates: start: 20090601

REACTIONS (7)
  - Nausea [Unknown]
  - Abdominal distension [Unknown]
  - Vomiting [Unknown]
  - Gastrooesophageal reflux disease [Recovering/Resolving]
  - Barrett^s oesophagus [Unknown]
  - Weight decreased [Unknown]
  - Diarrhoea [Recovered/Resolved]

NARRATIVE: CASE EVENT DATE: 20090701
